FAERS Safety Report 16527891 (Version 2)
Quarter: 2019Q4

REPORT INFORMATION
  Report Type: Spontaneous
  Country: US (occurrence: US)
  Receive Date: 20190703
  Receipt Date: 20191029
  Transmission Date: 20200122
  Serious: No
  Sender: FDA-Public Use
  Company Number: US-TEVA-2019-US-1067921

PATIENT
  Age: 46 Year
  Sex: Female

DRUGS (1)
  1. SPIRONOLACTONE. [Suspect]
     Active Substance: SPIRONOLACTONE
     Indication: ACNE
     Route: 065

REACTIONS (3)
  - Vulvitis [Recovered/Resolved]
  - Off label use [Unknown]
  - Female sexual arousal disorder [Recovering/Resolving]
